FAERS Safety Report 7643777-4 (Version None)
Quarter: 2011Q3

REPORT INFORMATION
  Report Type: 
  Country: None (occurrence: None)
  Receive Date: 20110722
  Receipt Date: 20110706
  Transmission Date: 20111222
  Serious: Yes (Disabling)
  Sender: FDA-Public Use
  Company Number: 2011MA008437

PATIENT
  Age: 67 Year
  Sex: Male

DRUGS (1)
  1. METOCLOPRAMIDE [Suspect]

REACTIONS (4)
  - MUSCLE SPASMS [None]
  - DRUG PRESCRIBING ERROR [None]
  - MULTIPLE INJURIES [None]
  - TREMOR [None]
